FAERS Safety Report 16514034 (Version 1)
Quarter: 2019Q3

REPORT INFORMATION
  Report Type: Spontaneous
  Country: CH (occurrence: CH)
  Receive Date: 20190701
  Receipt Date: 20190701
  Transmission Date: 20191004
  Serious: Yes (Other)
  Sender: FDA-Public Use
  Company Number: CH-BAXTER-2019BAX012644

PATIENT
  Age: 9 Year
  Sex: Male

DRUGS (3)
  1. HOLOXAN 2 G [Suspect]
     Active Substance: IFOSFAMIDE
     Indication: EWING^S SARCOMA
     Route: 042
     Dates: start: 20190605, end: 20190606
  2. HOLOXAN 2 G [Suspect]
     Active Substance: IFOSFAMIDE
     Dosage: DOSE RE-INTRODUCED
     Route: 042
  3. UROMITEXAN 400 ML, L?SUNG ZUR INTRAVEN?SEN ANWENDUNG [Suspect]
     Active Substance: MESNA
     Indication: PROPHYLAXIS
     Route: 042
     Dates: start: 20190605, end: 20190606

REACTIONS (1)
  - Cystitis haemorrhagic [Not Recovered/Not Resolved]

NARRATIVE: CASE EVENT DATE: 20190607
